FAERS Safety Report 25510388 (Version 1)
Quarter: 2025Q3

REPORT INFORMATION
  Report Type: Spontaneous
  Country: CH (occurrence: CH)
  Receive Date: 20250703
  Receipt Date: 20250703
  Transmission Date: 20251020
  Serious: Yes (Life-Threatening, Hospitalization)
  Sender: JOHNSON AND JOHNSON
  Company Number: CH-JNJFOC-20250702016

PATIENT
  Age: 70 Year
  Sex: Female

DRUGS (7)
  1. RISPERIDONE [Suspect]
     Active Substance: RISPERIDONE
     Indication: Schizoaffective disorder
     Route: 065
  2. RISPERIDONE [Suspect]
     Active Substance: RISPERIDONE
  3. RISPERIDONE [Suspect]
     Active Substance: RISPERIDONE
  4. RISPERIDONE [Suspect]
     Active Substance: RISPERIDONE
  5. RISPERIDONE [Suspect]
     Active Substance: RISPERIDONE
  6. RISPERIDONE [Suspect]
     Active Substance: RISPERIDONE
  7. TRAZODONE [Suspect]
     Active Substance: TRAZODONE HYDROCHLORIDE
     Indication: Schizoaffective disorder
     Route: 065

REACTIONS (1)
  - Inappropriate antidiuretic hormone secretion [Unknown]
